FAERS Safety Report 7655401-5 (Version None)
Quarter: 2011Q3

REPORT INFORMATION
  Report Type: 
  Country: None (occurrence: None)
  Receive Date: 20110729
  Receipt Date: 20110719
  Transmission Date: 20111222
  Serious: Yes (Hospitalization)
  Sender: FDA-Public Use
  Company Number: 1000020649

PATIENT
  Age: 50 Year
  Sex: Male
  Weight: 88 kg

DRUGS (5)
  1. ESCITALOPRAM [Suspect]
     Indication: DEPRESSION
     Dosage: 20 MG (20 MG, 1 IN 1 D), ORAL, 20 MG (10 MG, 2 IN 1 D), ORAL
     Route: 048
     Dates: start: 20090101
  2. ESCITALOPRAM [Suspect]
     Indication: DEPRESSION
     Dosage: 20 MG (20 MG, 1 IN 1 D), ORAL, 20 MG (10 MG, 2 IN 1 D), ORAL
     Route: 048
     Dates: start: 20090101
  3. ASS (ACETYLSALICYLIC ACID) (ACETYLSALICYLIC ACID) [Concomitant]
  4. BISOPROLOL FUMARATE [Concomitant]
  5. CODIOVAN (VALSARTAN HYDROCHLOROTHIAZIDE) (VALSARTAN, HYDROCHLOROTHIAZI [Concomitant]

REACTIONS (2)
  - SCREAMING [None]
  - PARASOMNIA [None]
